FAERS Safety Report 8949764 (Version 1)
Quarter: 2012Q4

REPORT INFORMATION
  Report Type: 
  Country: CN (occurrence: CN)
  Receive Date: 20121206
  Receipt Date: 20121206
  Transmission Date: 20130627
  Serious: Yes (Other)
  Sender: FDA-Public Use
  Company Number: CN-ROCHE-1162783

PATIENT

DRUGS (2)
  1. CAPECITABINE [Suspect]
     Indication: RECTAL CANCER
     Route: 065
  2. OXALIPLATIN [Suspect]
     Indication: RECTAL CANCER
     Route: 065

REACTIONS (1)
  - Gastrointestinal toxicity [Unknown]
